FAERS Safety Report 6096987-4 (Version None)
Quarter: 2009Q1

REPORT INFORMATION
  Report Type: 
  Country: None (occurrence: None)
  Receive Date: 20090227
  Receipt Date: 20090214
  Transmission Date: 20090719
  Serious: Yes (Hospitalization)
  Sender: FDA-Public Use
  Company Number: PHHY2009MX05601

PATIENT
  Sex: Female

DRUGS (1)
  1. DIOVAN HCT [Suspect]
     Indication: HYPERTENSION
     Dosage: (160/12.5) MG/DAY ; 1 TABLET/DAY
     Route: 048

REACTIONS (3)
  - HIP SURGERY [None]
  - KNEE OPERATION [None]
  - ROAD TRAFFIC ACCIDENT [None]
